FAERS Safety Report 8571038-8 (Version None)
Quarter: 2012Q3

REPORT INFORMATION
  Report Type: 
  Country: None (occurrence: None)
  Receive Date: 20120730
  Receipt Date: 20120730
  Transmission Date: 20120928
  Serious: Yes (Hospitalization)
  Sender: FDA-Public Use
  Company Number: None

PATIENT
  Age: 26 Year
  Sex: Male
  Weight: 102.0593 kg

DRUGS (1)
  1. BANZEL [Suspect]
     Indication: PANCREATITIS
     Dosage: 00 MG MORNING PO 1200 MG EVENING PO
     Route: 048
     Dates: start: 20110910, end: 20120731

REACTIONS (4)
  - VOMITING [None]
  - CONSTIPATION [None]
  - ABDOMINAL PAIN UPPER [None]
  - NAUSEA [None]
